FAERS Safety Report 9716970 (Version 1)
Quarter: 2013Q4

REPORT INFORMATION
  Report Type: Spontaneous
  Country: US (occurrence: US)
  Receive Date: 20131127
  Receipt Date: 20131127
  Transmission Date: 20140711
  Serious: No
  Sender: FDA-Public Use
  Company Number: US-GILEAD-2009-0020145

PATIENT
  Sex: Female
  Weight: 63.5 kg

DRUGS (3)
  1. LETAIRIS [Suspect]
     Indication: PULMONARY ARTERIAL HYPERTENSION
     Route: 048
     Dates: start: 20081012
  2. LOVASTATIN [Concomitant]
  3. ASPIRIN [Concomitant]

REACTIONS (1)
  - Nasal congestion [Unknown]
